FAERS Safety Report 6121297-6 (Version None)
Quarter: 2009Q1

REPORT INFORMATION
  Report Type: 
  Country: None (occurrence: None)
  Receive Date: 20090317
  Receipt Date: 20090309
  Transmission Date: 20090719
  Serious: Yes (Hospitalization)
  Sender: FDA-Public Use
  Company Number: ES-ASTRAZENECA-2009AC00782

PATIENT
  Age: 41 Year
  Sex: Female

DRUGS (2)
  1. TAMOXIFEN CITRATE [Suspect]
     Indication: BREAST CANCER
     Dates: start: 20080801, end: 20080821
  2. ZOLADEX [Suspect]
     Indication: BREAST CANCER
     Dosage: 3.6 MG 1 SYRINGE
     Dates: start: 20080801, end: 20080821

REACTIONS (5)
  - ASTHENIA [None]
  - GASTROINTESTINAL TOXICITY [None]
  - MALAISE [None]
  - NEUTROPENIA [None]
  - PYREXIA [None]
